FAERS Safety Report 14052593 (Version 1)
Quarter: 2017Q4

REPORT INFORMATION
  Report Type: Spontaneous
  Country: US (occurrence: US)
  Receive Date: 20171005
  Receipt Date: 20171005
  Transmission Date: 20180321
  Serious: No
  Sender: FDA-Public Use
  Company Number: US-JNJFOC-20170907244

PATIENT
  Age: 81 Year
  Sex: Male
  Weight: 99.79 kg

DRUGS (4)
  1. IMODIUM MULTI-SYMPTOM RELIEF [Suspect]
     Active Substance: DIMETHICONE\LOPERAMIDE HYDROCHLORIDE
     Route: 048
  2. IMODIUM AD [Suspect]
     Active Substance: LOPERAMIDE HYDROCHLORIDE
     Indication: DIARRHOEA
     Dosage: TWO CAPLETS IN MORNING, ONE CAPLET AFTER 6-7 HOURS AND ONE AT NIGHT FOR 19 DAYS
     Route: 065
     Dates: start: 20170818
  3. IMODIUM AD [Suspect]
     Active Substance: LOPERAMIDE HYDROCHLORIDE
     Route: 065
  4. IMODIUM MULTI-SYMPTOM RELIEF [Suspect]
     Active Substance: DIMETHICONE\LOPERAMIDE HYDROCHLORIDE
     Indication: DIARRHOEA
     Dosage: TWO CAPLETS IN MORNING, ONE CAPLET AFTER 6-7 HOURS AND ONE AT NIGHT FOR 19 DAYS
     Route: 048
     Dates: start: 20170818

REACTIONS (2)
  - Product label issue [Unknown]
  - Inappropriate schedule of drug administration [Unknown]
